FAERS Safety Report 5341676-4 (Version None)
Quarter: 2007Q2

REPORT INFORMATION
  Report Type: 
  Country: None (occurrence: None)
  Receive Date: 20070530
  Receipt Date: 20070515
  Transmission Date: 20071010
  Serious: Yes (Hospitalization)
  Sender: FDA-Public Use
  Company Number: 148680ISR

PATIENT
  Age: 69 Year
  Sex: Male

DRUGS (1)
  1. SIMVASTATIN [Suspect]
     Indication: HYPERCHOLESTEROLAEMIA
     Dosage: 40 MG (10 MG, 4 IN 1 D), ORAL
     Route: 048
     Dates: start: 19961201, end: 20000501

REACTIONS (15)
  - ASTHENIA [None]
  - BLOOD CREATINE PHOSPHOKINASE INCREASED [None]
  - CORONARY ARTERY STENOSIS [None]
  - DIPLOPIA [None]
  - DIZZINESS [None]
  - ELECTROCARDIOGRAM ST SEGMENT DEPRESSION [None]
  - EYELID PTOSIS [None]
  - FALL [None]
  - FATIGUE [None]
  - GLYCOGEN STORAGE DISEASE TYPE V [None]
  - LOSS OF CONSCIOUSNESS [None]
  - MUSCULAR WEAKNESS [None]
  - MYALGIA [None]
  - MYASTHENIA GRAVIS [None]
  - MYOSITIS [None]
